FAERS Safety Report 6382231-7 (Version None)
Quarter: 2009Q3

REPORT INFORMATION
  Report Type: 
  Country: None (occurrence: None)
  Receive Date: 20090928
  Receipt Date: 20090928
  Transmission Date: 20100115
  Serious: Yes (Hospitalization, Disabling, Other)
  Sender: FDA-Public Use
  Company Number: None

PATIENT
  Sex: Female
  Weight: 77.1115 kg

DRUGS (4)
  1. LUCENTIS [Suspect]
     Indication: MACULAR DEGENERATION
     Dosage: EVERY 3 MON - EYE INJ- LUCENTIS
     Dates: start: 20080301, end: 20080601
  2. MACUGEN [Suspect]
     Dosage: EVERY 3 MON EYE INJ
     Dates: start: 20080901
  3. MACUGEN [Suspect]
     Dosage: EVERY 3 MON EYE INJ
     Dates: start: 20090301
  4. MACUGEN [Suspect]
     Dosage: EVERY 3 MON EYE INJ
     Dates: start: 20090601

REACTIONS (1)
  - CEREBROVASCULAR ACCIDENT [None]
